FAERS Safety Report 21211673 (Version 1)
Quarter: 2022Q3

REPORT INFORMATION
  Report Type: Spontaneous
  Country: US (occurrence: None)
  Receive Date: 20220812
  Receipt Date: 20220812
  Transmission Date: 20221026
  Serious: Yes (Hospitalization)
  Sender: FDA-Public Use
  Company Number: None

PATIENT
  Sex: Female

DRUGS (3)
  1. ENTECAVIR [Suspect]
     Active Substance: ENTECAVIR
     Indication: Pulmonary arterial hypertension
     Dosage: 0.5 MG ORAL?TAKE 1 TABLET (0.5 MG) BY MOUTH ONCE DAILY.?
     Route: 048
     Dates: start: 20210601
  2. ENTECAVIR [Suspect]
     Active Substance: ENTECAVIR
     Dosage: FREQUENCY : DAILY;?
     Route: 048
  3. SILDENAFIL [Concomitant]
     Active Substance: SILDENAFIL

REACTIONS (1)
  - Hospitalisation [None]
